FAERS Safety Report 24592257 (Version 2)
Quarter: 2024Q4

REPORT INFORMATION
  Report Type: Report from Study
  Country: US (occurrence: US)
  Receive Date: 20241108
  Receipt Date: 20241216
  Transmission Date: 20250115
  Serious: Yes (Other)
  Sender: ABBVIE
  Company Number: US-ABBVIE-5931217

PATIENT
  Age: 68 Year
  Sex: Female
  Weight: 71 kg

DRUGS (10)
  1. HUMIRA [Suspect]
     Active Substance: ADALIMUMAB
     Indication: Retinal vasculitis
     Dosage: THERAPY END DATE: 2024, FORM STRENGTH : 40 MILLIGRAM
     Route: 058
     Dates: start: 20240521
  2. HUMIRA [Suspect]
     Active Substance: ADALIMUMAB
     Indication: Uveitis
     Route: 058
     Dates: start: 2019, end: 20240305
  3. DUREZOL [Concomitant]
     Active Substance: DIFLUPREDNATE
     Indication: Ocular discomfort
     Route: 047
  4. TIMOLOL MALEATE [Concomitant]
     Active Substance: TIMOLOL MALEATE
     Indication: Ocular discomfort
     Route: 047
  5. VITAMIN B12 [Concomitant]
     Active Substance: CYANOCOBALAMIN
     Indication: Vitamin supplementation
  6. EPIPEN [Concomitant]
     Active Substance: EPINEPHRINE
     Indication: Wound complication
  7. VITAMIN B3 [Concomitant]
     Active Substance: NIACIN
     Indication: Vitamin supplementation
  8. DORZOLAMIDE [Concomitant]
     Active Substance: DORZOLAMIDE
     Indication: Ocular discomfort
     Route: 047
  9. CALCIUM [Concomitant]
     Active Substance: CALCIUM
     Indication: Mineral supplementation
  10. LISINOPRIL [Concomitant]
     Active Substance: LISINOPRIL
     Indication: Hypertension
     Dosage: 20 MILLIGRAM

REACTIONS (6)
  - Polyp [Recovered/Resolved]
  - Off label use [Not Recovered/Not Resolved]
  - Fat tissue increased [Not Recovered/Not Resolved]
  - Contusion [Recovered/Resolved]
  - Pain [Recovered/Resolved]
  - Breast disorder [Recovered/Resolved]

NARRATIVE: CASE EVENT DATE: 20190101
